FAERS Safety Report 8457742-0 (Version None)
Quarter: 2012Q2

REPORT INFORMATION
  Report Type: 
  Country: None (occurrence: None)
  Receive Date: 20120618
  Receipt Date: 20120618
  Transmission Date: 20120825
  Serious: Yes (Other)
  Sender: FDA-Public Use
  Company Number: None

PATIENT
  Age: 35 Year
  Sex: Female
  Weight: 65.7716 kg

DRUGS (1)
  1. MIRENA [Suspect]
     Indication: CONTRACEPTION
     Dosage: 20MG/DAY 5 YEARS INTRA-UTERI
     Route: 015
     Dates: start: 20111003, end: 20120525

REACTIONS (2)
  - DEPRESSION [None]
  - ALOPECIA AREATA [None]
